FAERS Safety Report 24195831 (Version 1)
Quarter: 2024Q3

REPORT INFORMATION
  Report Type: Spontaneous
  Country: CA (occurrence: CA)
  Receive Date: 20240809
  Receipt Date: 20240809
  Transmission Date: 20241017
  Serious: Yes (Life-Threatening, Hospitalization)
  Sender: TEVA
  Company Number: CA-TEVA-VS-3227788

PATIENT
  Age: 16 Year
  Sex: Male
  Weight: 61 kg

DRUGS (2)
  1. CISPLATIN [Suspect]
     Active Substance: CISPLATIN
     Indication: Product used for unknown indication
     Dosage: DESCRIPTION: CISPLATIN INJECTION, DOSE FORM: SOLUTION INTRAVENOUS
     Route: 042
  2. DOXORUBICIN [Suspect]
     Active Substance: DOXORUBICIN
     Indication: Product used for unknown indication
     Dosage: DESCRIPTION; DOXORUBICIN LIPOSOMAL
     Route: 065

REACTIONS (1)
  - Febrile neutropenia [Recovered/Resolved]
